FAERS Safety Report 7433224-X (Version None)
Quarter: 2011Q2

REPORT INFORMATION
  Report Type: 
  Country: None (occurrence: None)
  Receive Date: 20110422
  Receipt Date: 20110413
  Transmission Date: 20111010
  Serious: Yes (Hospitalization)
  Sender: FDA-Public Use
  Company Number: FR-CEPHALON-2011001864

PATIENT
  Sex: Female

DRUGS (2)
  1. DURAGESIC-100 [Suspect]
  2. ACTIQ [Suspect]
     Route: 002

REACTIONS (2)
  - DRUG INEFFECTIVE [None]
  - UNEVALUABLE EVENT [None]
